FAERS Safety Report 6296818-3 (Version None)
Quarter: 2009Q3

REPORT INFORMATION
  Report Type: 
  Country: None (occurrence: None)
  Receive Date: 20090804
  Receipt Date: 20090723
  Transmission Date: 20100115
  Serious: Yes (Other)
  Sender: FDA-Public Use
  Company Number: PHHY2009DE14272

PATIENT
  Sex: Female
  Weight: 52 kg

DRUGS (3)
  1. ACLASTA [Suspect]
     Indication: OSTEOPOROSIS
     Dosage: 5 MG, UNK
     Route: 042
     Dates: start: 20090410
  2. SIMVASTATIN [Concomitant]
     Dosage: 40 MG, UNK
     Route: 048
  3. PROTELOS [Concomitant]
     Indication: OSTEOPOROSIS
     Dosage: UNK
     Dates: end: 20090410

REACTIONS (5)
  - ARTHRALGIA [None]
  - ASPIRATION JOINT [None]
  - C-REACTIVE PROTEIN INCREASED [None]
  - JOINT EFFUSION [None]
  - JOINT SWELLING [None]
